FAERS Safety Report 8362321-X (Version None)
Quarter: 2012Q2

REPORT INFORMATION
  Report Type: 
  Country: None (occurrence: None)
  Receive Date: 20120516
  Receipt Date: 20120503
  Transmission Date: 20120825
  Serious: Yes (Hospitalization, Other)
  Sender: FDA-Public Use
  Company Number: AU-AMGEN-AUSSP2012024082

PATIENT
  Age: 79 Year
  Sex: Female

DRUGS (1)
  1. ENBREL [Suspect]
     Indication: PRODUCT USED FOR UNKNOWN INDICATION
     Dosage: 50 MG, WEEKLY
     Dates: start: 20120301

REACTIONS (6)
  - HEPATITIS [None]
  - RHINORRHOEA [None]
  - EPISTAXIS [None]
  - NASOPHARYNGITIS [None]
  - CHOLECYSTITIS [None]
  - LYMPHADENOPATHY [None]
